FAERS Safety Report 4924725-4 (Version None)
Quarter: 2006Q1

REPORT INFORMATION
  Report Type: 
  Country: None (occurrence: None)
  Receive Date: 20060222
  Receipt Date: 20060209
  Transmission Date: 20060701
  Serious: Yes (Other)
  Sender: FDA-Public Use
  Company Number: ST-2006-008868

PATIENT
  Sex: Female

DRUGS (8)
  1. OLMETEC [Suspect]
     Indication: HYPERTENSION
     Dosage: 20 MG QD PO
     Route: 048
     Dates: start: 20050506, end: 20060207
  2. LOCHOL [Suspect]
     Dosage: 20 MG QD PO
     Route: 048
     Dates: end: 20060207
  3. VOLTAREN [Suspect]
     Dosage: 37.5 MG BID PO
     Route: 048
     Dates: end: 20060207
  4. ALFAROL [Concomitant]
  5. ASPARA-CA [Concomitant]
  6. CYANOCOBALAMIN [Concomitant]
  7. SELBEX [Concomitant]
  8. KETOPROFEN [Concomitant]

REACTIONS (2)
  - HAEMOGLOBIN DECREASED [None]
  - RED BLOOD CELL COUNT DECREASED [None]
